FAERS Safety Report 18652430 (Version 1)
Quarter: 2020Q4

REPORT INFORMATION
  Report Type: Spontaneous
  Country: FR (occurrence: FR)
  Receive Date: 20201223
  Receipt Date: 20201223
  Transmission Date: 20210114
  Serious: Yes (Other)
  Sender: FDA-Public Use
  Company Number: FR-AUROBINDO-AUR-APL-2020-062411

PATIENT
  Age: 16 Year
  Sex: Female

DRUGS (2)
  1. ALPRAZOLAM TABLETS [Suspect]
     Active Substance: ALPRAZOLAM
     Indication: PRODUCT USED FOR UNKNOWN INDICATION
     Dosage: JUSQU^? 8 COMPRIM?S DE FA?ON AL?ATOIRE
     Route: 048
     Dates: start: 201907
  2. DIAZEPAM TABLET [Suspect]
     Active Substance: DIAZEPAM
     Indication: PRODUCT USED FOR UNKNOWN INDICATION
     Dosage: JUSQU^10 COMPRIM?S DE 10 MG
     Route: 048
     Dates: start: 202009

REACTIONS (1)
  - Intentional product misuse [Unknown]

NARRATIVE: CASE EVENT DATE: 201907
